FAERS Safety Report 12298630 (Version 1)
Quarter: 2016Q2

REPORT INFORMATION
  Report Type: Report from Study
  Country: DE (occurrence: DE)
  Receive Date: 20160425
  Receipt Date: 20160425
  Transmission Date: 20160815
  Serious: Yes (Hospitalization)
  Sender: FDA-Public Use
  Company Number: DE-ROCHE-1723504

PATIENT
  Age: 62 Year
  Sex: Female
  Weight: 68 kg

DRUGS (3)
  1. GDC-0199 (BCL-2 SELECTIVE INHIBITOR) [Suspect]
     Active Substance: VENETOCLAX
     Indication: CHRONIC LYMPHOCYTIC LEUKAEMIA
     Dosage: THE CURRENT DOSE WAS REPORTED AS 400 MG. ON 06/FEB/2016, SHE RECEIVED HER MOST RECENT DOSE OF VENETO
     Route: 048
     Dates: start: 20151130, end: 20160324
  2. OBINUTUZUMAB [Suspect]
     Active Substance: OBINUTUZUMAB
     Indication: CHRONIC LYMPHOCYTIC LEUKAEMIA
     Dosage: THE CURRENT DOSE WAS REPORTED AS 0 MG. ON 02/FEB/2016, SHE RECEIVED HER FINAL DOSE OF OBINUTUZUMAB P
     Route: 042
     Dates: start: 20151105, end: 20160301
  3. BENDAMUSTINE [Suspect]
     Active Substance: BENDAMUSTINE
     Indication: CHRONIC LYMPHOCYTIC LEUKAEMIA
     Dosage: ON 16/OCT/2015, SHE RECEIVED HER FINAL DOSE OF BENDAMUSTINE PRIOR TO THE ONSET OF THE ADVERSE EVENT.
     Route: 042
     Dates: start: 20151015, end: 20151104

REACTIONS (1)
  - Pseudomonas infection [Recovered/Resolved]

NARRATIVE: CASE EVENT DATE: 20160307
